FAERS Safety Report 21578434 (Version 9)
Quarter: 2023Q4

REPORT INFORMATION
  Report Type: Report from Study
  Country: US (occurrence: US)
  Receive Date: 20221110
  Receipt Date: 20231222
  Transmission Date: 20240110
  Serious: Yes (Other)
  Sender: FDA-Public Use
  Company Number: US-ABBVIE-4159746

PATIENT
  Sex: Female

DRUGS (10)
  1. RINVOQ [Suspect]
     Active Substance: UPADACITINIB
     Indication: Dermatitis atopic
     Route: 048
  2. RINVOQ [Suspect]
     Active Substance: UPADACITINIB
     Indication: Dermatitis atopic
     Route: 048
  3. RINVOQ [Suspect]
     Active Substance: UPADACITINIB
     Indication: Dermatitis atopic
     Route: 048
  4. RINVOQ [Suspect]
     Active Substance: UPADACITINIB
     Indication: Dermatitis atopic
     Route: 048
  5. PFIZER-BIONTECH COVID-19 VACCINE [Concomitant]
     Active Substance: TOZINAMERAN
     Indication: COVID-19 immunisation
     Dosage: 1 IN 1 ONCE
     Route: 030
  6. PFIZER-BIONTECH COVID-19 VACCINE [Concomitant]
     Active Substance: TOZINAMERAN
     Indication: COVID-19 immunisation
     Dosage: 1 IN 1 ONCE (3RD DOSE)
     Route: 030
     Dates: start: 202201, end: 202201
  7. VITAMIN B12 [Suspect]
     Active Substance: CYANOCOBALAMIN
     Indication: Product used for unknown indication
     Route: 065
  8. DUPIXENT [Concomitant]
     Active Substance: DUPILUMAB
     Indication: Product used for unknown indication
  9. BENADRYL [Concomitant]
     Active Substance: DIPHENHYDRAMINE HYDROCHLORIDE
     Indication: Product used for unknown indication
  10. COBALT [Suspect]
     Active Substance: COBALT
     Indication: Product used for unknown indication
     Route: 065

REACTIONS (21)
  - Neuropathy peripheral [Unknown]
  - Oedema peripheral [Recovered/Resolved]
  - COVID-19 [Unknown]
  - Hypertension [Unknown]
  - Sinusitis [Recovering/Resolving]
  - Swollen tongue [Unknown]
  - Acne [Unknown]
  - Pruritus [Not Recovered/Not Resolved]
  - Rash macular [Recovering/Resolving]
  - Neuropathy vitamin B12 deficiency [Unknown]
  - Respiratory tract infection [Unknown]
  - Rash [Not Recovered/Not Resolved]
  - Drug hypersensitivity [Unknown]
  - Rash erythematous [Unknown]
  - Allergy to metals [Unknown]
  - Paraesthesia [Unknown]
  - Anaphylactic reaction [Unknown]
  - Dermatitis atopic [Recovering/Resolving]
  - Dermatitis allergic [Unknown]
  - Carpal tunnel syndrome [Unknown]
  - Asthma [Unknown]

NARRATIVE: CASE EVENT DATE: 20220101
